FAERS Safety Report 9863689 (Version 1)
Quarter: 2014Q1

REPORT INFORMATION
  Report Type: Spontaneous
  Country: CL (occurrence: CL)
  Receive Date: 20140203
  Receipt Date: 20140203
  Transmission Date: 20141002
  Serious: Yes (Other)
  Sender: FDA-Public Use
  Company Number: PHHY2014CL012814

PATIENT
  Sex: Female

DRUGS (1)
  1. TAREG [Suspect]
     Dosage: UNK UKN, UNK

REACTIONS (2)
  - Pulmonary fibrosis [Unknown]
  - Asthenia [Unknown]
